FAERS Safety Report 6809638-5 (Version None)
Quarter: 2010Q2

REPORT INFORMATION
  Report Type: 
  Country: None (occurrence: None)
  Receive Date: 20100630
  Receipt Date: 20100618
  Transmission Date: 20101027
  Serious: Yes (Hospitalization, Other)
  Sender: FDA-Public Use
  Company Number: TW-PFIZER INC-2010076152

PATIENT
  Age: 60 Year
  Sex: Male

DRUGS (1)
  1. SUNITINIB MALATE [Suspect]
     Indication: GASTROINTESTINAL STROMAL TUMOUR
     Dosage: 4/DAY
     Route: 048
     Dates: start: 20090701

REACTIONS (3)
  - ANAEMIA [None]
  - GASTRIC HAEMORRHAGE [None]
  - VERTIGO [None]
